FAERS Safety Report 10709408 (Version 2)
Quarter: 2015Q3

REPORT INFORMATION
  Report Type: Spontaneous
  Country: US (occurrence: US)
  Receive Date: 20150114
  Receipt Date: 20150728
  Transmission Date: 20151125
  Serious: No
  Sender: FDA-Public Use
  Company Number: US-AMGEN-USASL2015002184

PATIENT
  Age: 57 Year
  Sex: Female

DRUGS (1)
  1. ENBREL [Suspect]
     Active Substance: ETANERCEPT
     Indication: RHEUMATOID ARTHRITIS
     Dosage: 50 MG, WEEKLY
     Route: 065
     Dates: start: 20141023

REACTIONS (7)
  - Musculoskeletal stiffness [Not Recovered/Not Resolved]
  - Renal function test abnormal [Unknown]
  - Ear infection [Recovered/Resolved]
  - Joint swelling [Unknown]
  - Sinusitis [Recovered/Resolved]
  - Liver function test abnormal [Unknown]
  - Joint stiffness [Unknown]

NARRATIVE: CASE EVENT DATE: 2014
